FAERS Safety Report 14018921 (Version 4)
Quarter: 2018Q1

REPORT INFORMATION
  Report Type: Spontaneous
  Country: FR (occurrence: FR)
  Receive Date: 20170928
  Receipt Date: 20180306
  Transmission Date: 20180508
  Serious: Yes (Death, Hospitalization)
  Sender: FDA-Public Use
  Company Number: FR-CONCORDIA PHARMACEUTICALS INC.-GSH201709-005538

PATIENT
  Age: 43 Year
  Sex: Female
  Weight: 57.6 kg

DRUGS (6)
  1. DAFALGAN [Suspect]
     Active Substance: ACETAMINOPHEN
     Indication: MULTIPLE SCLEROSIS
     Route: 048
  2. QIZENDAY 100 MG, G?LULE [Suspect]
     Active Substance: BIOTIN
     Indication: MULTIPLE SCLEROSIS
     Route: 048
     Dates: start: 20160816, end: 20170522
  3. BACLOFEN. [Suspect]
     Active Substance: BACLOFEN
     Indication: MULTIPLE SCLEROSIS
     Route: 048
  4. VESICARE [Suspect]
     Active Substance: SOLIFENACIN SUCCINATE
     Indication: URINARY TRACT DISORDER
     Route: 048
  5. ALFUZOSIN [Suspect]
     Active Substance: ALFUZOSIN
     Indication: URINARY TRACT DISORDER
     Route: 048
  6. SEROPLEX [Suspect]
     Active Substance: ESCITALOPRAM OXALATE
     Indication: DEPRESSION
     Route: 048

REACTIONS (1)
  - Cerebral venous thrombosis [Fatal]

NARRATIVE: CASE EVENT DATE: 20170524
